FAERS Safety Report 9617433 (Version 1)
Quarter: 2013Q4

REPORT INFORMATION
  Report Type: Spontaneous
  Country: PL (occurrence: PL)
  Receive Date: 20131011
  Receipt Date: 20131011
  Transmission Date: 20140711
  Serious: Yes (Other)
  Sender: FDA-Public Use
  Company Number: PL-UCBSA-099829

PATIENT
  Age: 35 Year
  Sex: Female

DRUGS (10)
  1. LACOSAMIDE [Suspect]
     Indication: CONVULSION
     Route: 048
     Dates: start: 201302, end: 2013
  2. LEVETIRACETAM [Suspect]
     Indication: CONVULSION
     Dosage: DOSE: 2500 MG
     Dates: start: 2008
  3. LEVETIRACETAM [Suspect]
     Indication: CONVULSION
     Route: 048
     Dates: start: 2011
  4. VIGABATRIN [Concomitant]
     Indication: EPILEPSY
     Dosage: DOSE: 3000 MG
     Dates: start: 2008
  5. VALPROIC ACID [Concomitant]
     Indication: EPILEPSY
     Dosage: DOSE: 1800 MG
     Dates: start: 2008
  6. VALPROIC ACID [Concomitant]
     Indication: EPILEPSY
     Dosage: DAILY DOSE: 1500 MG
     Dates: start: 2010
  7. LAMOTRIGINE [Concomitant]
     Indication: EPILEPSY
     Dosage: DOSE: 175 MG
     Dates: start: 2008
  8. LAMOTRIGINE [Concomitant]
     Indication: EPILEPSY
     Dosage: DAILY DOSE: 150 MG
     Dates: start: 2010
  9. ETHOSUXIMIDE [Concomitant]
     Indication: EPILEPSY
     Dosage: DOSE: 500 MG
     Dates: start: 2008
  10. PRIMIDONE [Concomitant]
     Indication: EPILEPSY
     Dosage: DOSE: 750 MG
     Dates: start: 2008

REACTIONS (4)
  - Convulsion [Unknown]
  - Grand mal convulsion [Unknown]
  - Fall [Unknown]
  - Adverse drug reaction [Unknown]
